FAERS Safety Report 21229839 (Version 3)
Quarter: 2022Q3

REPORT INFORMATION
  Report Type: Report from Study
  Country: AT (occurrence: AT)
  Receive Date: 20220818
  Receipt Date: 20220926
  Transmission Date: 20221026
  Serious: Yes (Other)
  Sender: FDA-Public Use
  Company Number: AT-SERVIER-S22007785

PATIENT
  Age: 73 Year
  Sex: Female
  Weight: 71 kg

DRUGS (11)
  1. BEVACIZUMAB [Suspect]
     Active Substance: BEVACIZUMAB
     Indication: Colorectal cancer metastatic
     Dosage: 5 MG/KG
     Route: 042
     Dates: start: 20220627
  2. LONSURF [Suspect]
     Active Substance: TIPIRACIL HYDROCHLORIDE\TRIFLURIDINE
     Indication: Colorectal cancer metastatic
     Dosage: 55 MG, 2X/DAY (55 MG (35 MG/M2), BID, ON DAYS 1-5 AND 8-12 OF EACH 28-DAY CYCLE)
     Route: 048
     Dates: start: 20220627, end: 20220805
  3. COLDISTOP [Concomitant]
     Indication: Prophylaxis
     Dosage: UNK, AS NEEDED, (PRN)
     Route: 045
  4. CARVEDILOL [Concomitant]
     Active Substance: CARVEDILOL
     Indication: Hypertension
     Dosage: 25 MG, 1X/DAY
     Route: 048
     Dates: start: 20200831
  5. ENTEROBENE [Concomitant]
     Indication: Diarrhoea
     Dosage: 2 MG, AS NEEDED, (PRN)
     Route: 048
     Dates: start: 20220112
  6. ELIQUIS [Concomitant]
     Active Substance: APIXABAN
     Indication: Thrombosis
     Dosage: 5 MG, 2X/DAY
     Route: 048
     Dates: start: 20220207
  7. LENDORM [Concomitant]
     Active Substance: BROTIZOLAM
     Indication: Sleep disorder
     Dosage: 0.25 MG, AS NEEDED, (PRN)
     Route: 048
     Dates: start: 20201127
  8. NOVALGIN (METAMIZOLE SODIUM) [Concomitant]
     Active Substance: METAMIZOLE SODIUM
     Indication: Pain
     Dosage: 500 MG, AS NEEDED, (PRN)
     Route: 048
     Dates: start: 20210802
  9. PANTOPRAZOLE SODIUM [Concomitant]
     Active Substance: PANTOPRAZOLE SODIUM
     Indication: Prophylaxis
     Dosage: 40 MG, 1X/DAY, (QD)
     Route: 048
     Dates: start: 20220112
  10. LEVOTHYROXINE SODIUM [Concomitant]
     Active Substance: LEVOTHYROXINE SODIUM
     Indication: Goitre
     Dosage: 50 UG, 1X/DAY, (50 MCG QD)
     Route: 048
     Dates: start: 20201002
  11. ZOFRAN [Concomitant]
     Active Substance: ONDANSETRON HYDROCHLORIDE
     Indication: Nausea
     Dosage: 8 MG, AS NEEDED (PRN)
     Route: 048
     Dates: start: 20201013

REACTIONS (7)
  - Neutropenia [Recovered/Resolved]
  - Neutropenia [Recovered/Resolved]
  - Leukopenia [Recovered/Resolved]
  - Anaemia [Recovered/Resolved]
  - Anaemia [Recovered/Resolved]
  - Off label use [Unknown]
  - Product use issue [Recovered/Resolved]

NARRATIVE: CASE EVENT DATE: 20220627
